FAERS Safety Report 4321123-1 (Version None)
Quarter: 2004Q1

REPORT INFORMATION
  Report Type: 
  Country: None (occurrence: None)
  Receive Date: 20040322
  Receipt Date: 20040309
  Transmission Date: 20041129
  Serious: Yes (Other)
  Sender: FDA-Public Use
  Company Number: AU-GLAXOSMITHKLINE-B0326155A

PATIENT
  Sex: Female

DRUGS (1)
  1. ZYBAN [Suspect]

REACTIONS (1)
  - BLINDNESS TRANSIENT [None]
